FAERS Safety Report 14499298 (Version 1)
Quarter: 2018Q1

REPORT INFORMATION
  Report Type: Spontaneous
  Country: US (occurrence: US)
  Receive Date: 20180207
  Receipt Date: 20180207
  Transmission Date: 20180509
  Serious: No
  Sender: FDA-Public Use
  Company Number: US-JAZZ-2017-US-001516

PATIENT
  Sex: Female

DRUGS (21)
  1. PRIALT [Suspect]
     Active Substance: ZICONOTIDE ACETATE
     Dosage: 0.006 ?G, QH
     Route: 037
     Dates: start: 20170509
  2. CLONIDINE. [Suspect]
     Active Substance: CLONIDINE
     Dosage: 137.8?G, QH
     Route: 037
     Dates: start: 20140916
  3. PRIALT [Suspect]
     Active Substance: ZICONOTIDE ACETATE
     Dosage: 0.006 ?G, QH
     Route: 037
     Dates: start: 20170316
  4. FENTANYL. [Suspect]
     Active Substance: FENTANYL
     Indication: PAIN
     Dosage: 150.17 ?G, QH
     Route: 037
     Dates: start: 20140730
  5. FENTANYL. [Suspect]
     Active Substance: FENTANYL
     Dosage: 137.8 ?G, QH
     Route: 037
     Dates: start: 20140916
  6. FENTANYL. [Suspect]
     Active Substance: FENTANYL
     Dosage: 95.85?G, QH
     Route: 037
     Dates: start: 20170509
  7. BUPIVACAINE. [Suspect]
     Active Substance: BUPIVACAINE
     Dosage: 0.287 MG, QH
     Route: 037
     Dates: start: 20140916
  8. CLONIDINE. [Suspect]
     Active Substance: CLONIDINE
     Dosage: 95.85?G, QH
     Route: 037
     Dates: start: 20170316
  9. PRIALT [Suspect]
     Active Substance: ZICONOTIDE ACETATE
     Dosage: 0.009 ?G, QH
     Route: 037
     Dates: start: 20140916
  10. FENTANYL. [Suspect]
     Active Substance: FENTANYL
     Dosage: 95.85?G, QH
     Route: 037
     Dates: start: 20170316
  11. FENTANYL. [Suspect]
     Active Substance: FENTANYL
     Dosage: 95.85 ?G, QH
     Route: 037
     Dates: start: 20170717
  12. BUPIVACAINE. [Suspect]
     Active Substance: BUPIVACAINE
     Dosage: .159MG, QH; 10.0 MG/ML
     Route: 037
     Dates: start: 20170316
  13. CLONIDINE. [Suspect]
     Active Substance: CLONIDINE
     Indication: PAIN
     Dosage: 150.17?G, QH
     Route: 037
     Dates: start: 20140730
  14. BUPIVACAINE. [Suspect]
     Active Substance: BUPIVACAINE
     Dosage: .159MG, QH; 10.0 MG/ML
     Route: 037
     Dates: start: 20170509
  15. CLONIDINE. [Suspect]
     Active Substance: CLONIDINE
     Dosage: 95.85?G, QH
     Route: 037
     Dates: start: 20170717, end: 2017
  16. BUPIVACAINE. [Suspect]
     Active Substance: BUPIVACAINE
     Dosage: 0.16 MG, QH
     Route: 037
     Dates: start: 20170717
  17. CLONIDINE. [Suspect]
     Active Substance: CLONIDINE
     Dosage: .06?G, QH
     Route: 037
     Dates: start: 20170717
  18. PRIALT [Suspect]
     Active Substance: ZICONOTIDE ACETATE
     Indication: PAIN
     Dosage: 0.01 ?G, QH
     Route: 037
     Dates: start: 20140730
  19. BUPIVACAINE. [Suspect]
     Active Substance: BUPIVACAINE
     Indication: PAIN
     Dosage: .312 MG, QH
     Route: 037
     Dates: start: 20140730
  20. CLONIDINE. [Suspect]
     Active Substance: CLONIDINE
     Dosage: 95.85?G, QH
     Route: 039
     Dates: start: 20170509
  21. PRIALT [Suspect]
     Active Substance: ZICONOTIDE ACETATE
     Dosage: 0.006 ?G, QH
     Route: 037
     Dates: start: 20170717

REACTIONS (2)
  - Somnolence [Recovered/Resolved]
  - Pain [Not Recovered/Not Resolved]
